FAERS Safety Report 21657019 (Version 2)
Quarter: 2022Q4

REPORT INFORMATION
  Report Type: Spontaneous
  Country: US (occurrence: US)
  Receive Date: 20221129
  Receipt Date: 20221215
  Transmission Date: 20230112
  Serious: Yes (Other)
  Sender: FDA-Public Use
  Company Number: US-BAYER-2022A160981

PATIENT
  Age: 21 Year
  Sex: Female
  Weight: 43.9 kg

DRUGS (1)
  1. MIRENA [Suspect]
     Active Substance: LEVONORGESTREL
     Indication: Contraception
     Dosage: 20?G/DAY
     Route: 015
     Dates: start: 20221116, end: 20221116

REACTIONS (4)
  - Uterine perforation [Recovered/Resolved]
  - Complication of device insertion [Recovered/Resolved]
  - Device difficult to use [None]
  - Uterine spasm [Recovered/Resolved]

NARRATIVE: CASE EVENT DATE: 20221116
